FAERS Safety Report 25479946 (Version 1)
Quarter: 2025Q2

REPORT INFORMATION
  Report Type: Spontaneous
  Country: US (occurrence: US)
  Receive Date: 20250625
  Receipt Date: 20250625
  Transmission Date: 20250717
  Serious: Yes (Hospitalization)
  Sender: NOVO NORDISK
  Company Number: US-NOVOPROD-1461775

PATIENT
  Age: 80 Year
  Sex: Female

DRUGS (3)
  1. LEVEMIR [Suspect]
     Active Substance: INSULIN DETEMIR
     Indication: Type 2 diabetes mellitus
     Dosage: 45 IU, QD IN AM
     Route: 058
     Dates: start: 2013
  2. LEVEMIR [Suspect]
     Active Substance: INSULIN DETEMIR
     Dosage: 30 IU, QD AT NIGHT
     Route: 058
  3. LEVEMIR [Suspect]
     Active Substance: INSULIN DETEMIR
     Dosage: 35 IU, QD AT NIGHT
     Route: 058

REACTIONS (5)
  - Femur fracture [Not Recovered/Not Resolved]
  - Inner ear disorder [Not Recovered/Not Resolved]
  - Fall [Recovered/Resolved]
  - Sinus disorder [Unknown]
  - Blood glucose decreased [Recovered/Resolved]

NARRATIVE: CASE EVENT DATE: 20200501
